FAERS Safety Report 7402938-X (Version None)
Quarter: 2011Q2

REPORT INFORMATION
  Report Type: 
  Country: None (occurrence: None)
  Receive Date: 20110408
  Receipt Date: 20110401
  Transmission Date: 20111010
  Serious: Yes (Hospitalization)
  Sender: FDA-Public Use
  Company Number: FR-SANOFI-AVENTIS-2011SA019965

PATIENT
  Age: 96 Year
  Sex: Male

DRUGS (9)
  1. KAYEXALATE [Concomitant]
     Route: 048
     Dates: start: 20100101, end: 20110117
  2. KAYEXALATE [Concomitant]
     Indication: RENAL FAILURE
     Route: 048
     Dates: start: 20100101, end: 20110117
  3. FLECTOR [Concomitant]
  4. FUROSEMIDE [Concomitant]
     Route: 048
     Dates: end: 20110117
  5. FUROSEMIDE [Concomitant]
     Route: 048
     Dates: start: 20110117
  6. KARDEGIC [Concomitant]
     Route: 048
  7. GLYCEROL/PARAFFIN, LIQUID/WHITE SOFT PARAFFIN [Concomitant]
  8. XATRAL [Suspect]
     Route: 048
     Dates: end: 20110117
  9. LEVOTHYROX [Concomitant]
     Route: 048

REACTIONS (2)
  - FALL [None]
  - HYPOKALAEMIA [None]
